FAERS Safety Report 9180882 (Version 2)
Quarter: 2013Q3

REPORT INFORMATION
  Report Type: Report from Study
  Country: DE (occurrence: DE)
  Receive Date: 20130322
  Receipt Date: 20130703
  Transmission Date: 20140515
  Serious: Yes (Death, Hospitalization)
  Sender: FDA-Public Use
  Company Number: DE-MPIJNJ-2013-02220

PATIENT
  Sex: 0

DRUGS (2)
  1. VELCADE [Suspect]
     Indication: PLASMA CELL MYELOMA
     Dosage: 1 UNK, UNK
     Route: 065
     Dates: start: 20121208, end: 20130218
  2. CYCLOPHOSPHAMIDE [Concomitant]

REACTIONS (2)
  - Neutropenia [Fatal]
  - Sepsis [Fatal]
